FAERS Safety Report 9887240 (Version 1)
Quarter: 2014Q1

REPORT INFORMATION
  Report Type: Spontaneous
  Country: US (occurrence: US)
  Receive Date: 20140211
  Receipt Date: 20140211
  Transmission Date: 20141002
  Serious: No
  Sender: FDA-Public Use
  Company Number: US-BIOGENIDEC-2014BI010134

PATIENT
  Age: 56 Year
  Sex: Female

DRUGS (8)
  1. TECFIDERA [Suspect]
     Indication: MULTIPLE SCLEROSIS
     Route: 048
     Dates: start: 20140115
  2. ACTOS [Concomitant]
  3. EFFEXOR [Concomitant]
  4. GLIPIZIDE [Concomitant]
  5. IMITREX [Concomitant]
  6. KLONOPIN [Concomitant]
  7. METFORMIN HCL [Concomitant]
  8. SIMVASTATIN [Concomitant]

REACTIONS (2)
  - Vision blurred [Unknown]
  - Flushing [Unknown]
